FAERS Safety Report 12170987 (Version 4)
Quarter: 2016Q2

REPORT INFORMATION
  Report Type: Spontaneous
  Country: GB (occurrence: GB)
  Receive Date: 20160311
  Receipt Date: 20160419
  Transmission Date: 20160815
  Serious: Yes (Other)
  Sender: FDA-Public Use
  Company Number: GB-TEVA-640724ACC

PATIENT
  Age: 58 Year
  Sex: Female

DRUGS (107)
  1. LATANOPROST. [Suspect]
     Active Substance: LATANOPROST
     Dosage: 01 DROP AT NIGHT IN BOTH EYES
     Route: 065
     Dates: start: 20070604, end: 20080108
  2. LATANOPROST. [Suspect]
     Active Substance: LATANOPROST
     Dosage: 01 DROP AT NIGHT IN BOTH EYES
     Route: 065
     Dates: start: 20050725, end: 20080108
  3. CLIMESSE [Suspect]
     Active Substance: ESTRADIOL VALERATE\NORETHINDRONE
     Dosage: UNK
     Route: 048
     Dates: start: 20081006
  4. CLIMESSE [Suspect]
     Active Substance: ESTRADIOL VALERATE\NORETHINDRONE
     Dosage: UNK
     Route: 048
     Dates: start: 20050706
  5. CLIMESSE [Suspect]
     Active Substance: ESTRADIOL VALERATE\NORETHINDRONE
     Dosage: UNK
     Route: 048
     Dates: start: 20140325
  6. CLIMESSE [Suspect]
     Active Substance: ESTRADIOL VALERATE\NORETHINDRONE
     Dosage: UNK
     Route: 048
     Dates: start: 20061128
  7. CLIMESSE [Suspect]
     Active Substance: ESTRADIOL VALERATE\NORETHINDRONE
     Dosage: UNK UNK, QD
     Route: 048
     Dates: start: 20000921
  8. XALACOM [Suspect]
     Active Substance: LATANOPROST\TIMOLOL MALEATE
     Dosage: TO RIGHT EYE AT NIGHT (2.5 ML)
     Route: 065
     Dates: start: 20151006
  9. XALACOM [Suspect]
     Active Substance: LATANOPROST\TIMOLOL MALEATE
     Dosage: TO RIGHT EYE AT NIGHT (2.5 ML)
     Route: 065
     Dates: start: 20120224
  10. XALACOM [Suspect]
     Active Substance: LATANOPROST\TIMOLOL MALEATE
     Dosage: TO RIGHT EYE AT NIGHT (2.5 ML)
     Route: 065
     Dates: start: 20150917
  11. XALACOM [Suspect]
     Active Substance: LATANOPROST\TIMOLOL MALEATE
     Dosage: TO RIGHT EYE AT NIGHT (2.5 ML)
     Route: 065
     Dates: start: 20120103
  12. XALACOM [Suspect]
     Active Substance: LATANOPROST\TIMOLOL MALEATE
     Dosage: TO RIGHT EYE AT NIGHT (2.5 ML)
     Route: 065
     Dates: start: 20141216
  13. XALACOM [Suspect]
     Active Substance: LATANOPROST\TIMOLOL MALEATE
     Dosage: TO RIGHT EYE AT NIGHT (2.5 ML)
     Route: 065
     Dates: start: 20130111
  14. XALACOM [Suspect]
     Active Substance: LATANOPROST\TIMOLOL MALEATE
     Dosage: TO RIGHT EYE AT NIGHT (2.5 ML)
     Route: 065
     Dates: start: 20140909
  15. HYDROCORTISONE. [Suspect]
     Active Substance: HYDROCORTISONE
     Indication: PRODUCT USED FOR UNKNOWN INDICATION
     Dosage: 45 GRAM DAILY; 15 G, TID
     Route: 065
     Dates: start: 20020514
  16. LATANOPROST. [Suspect]
     Active Substance: LATANOPROST
     Dosage: 01 DROP AT NIGHT IN BOTH EYES
     Route: 065
     Dates: start: 20060119, end: 20080108
  17. LATANOPROST. [Suspect]
     Active Substance: LATANOPROST
     Dosage: 01 DROP AT NIGHT IN BOTH EYES
     Route: 065
     Dates: start: 20071122, end: 20080108
  18. LATANOPROST. [Suspect]
     Active Substance: LATANOPROST
     Dosage: 01 DROP AT NIGHT IN BOTH EYES
     Route: 065
     Dates: start: 20080108, end: 20080108
  19. CLIMESSE [Suspect]
     Active Substance: ESTRADIOL VALERATE\NORETHINDRONE
     Dosage: UNK
     Route: 048
     Dates: start: 20140826
  20. CLIMESSE [Suspect]
     Active Substance: ESTRADIOL VALERATE\NORETHINDRONE
     Dosage: UNK
     Route: 048
     Dates: start: 20080421
  21. CLIMESSE [Suspect]
     Active Substance: ESTRADIOL VALERATE\NORETHINDRONE
     Dosage: UNK
     Route: 048
     Dates: start: 20090904
  22. CLIMESSE [Suspect]
     Active Substance: ESTRADIOL VALERATE\NORETHINDRONE
     Dosage: UNK
     Route: 048
     Dates: start: 20090330
  23. CLIMESSE [Suspect]
     Active Substance: ESTRADIOL VALERATE\NORETHINDRONE
     Dosage: UNK
     Route: 048
     Dates: start: 20050107
  24. CLIMESSE [Suspect]
     Active Substance: ESTRADIOL VALERATE\NORETHINDRONE
     Dosage: UNK
     Route: 048
     Dates: start: 20150401
  25. CLIMESSE [Suspect]
     Active Substance: ESTRADIOL VALERATE\NORETHINDRONE
     Dosage: UNK
     Route: 048
     Dates: start: 20070509
  26. CLIMESSE [Suspect]
     Active Substance: ESTRADIOL VALERATE\NORETHINDRONE
     Dosage: UNK
     Route: 048
     Dates: start: 20131210
  27. INFLUENZA VIRUS [Suspect]
     Active Substance: INFLUENZA VIRUS VACCINE
     Indication: IMMUNISATION
     Dosage: 0.5 ML
     Route: 065
     Dates: start: 20131028, end: 20131028
  28. XALACOM [Suspect]
     Active Substance: LATANOPROST\TIMOLOL MALEATE
     Indication: PRODUCT USED FOR UNKNOWN INDICATION
     Dosage: TO RIGHT EYE AT NIGHT (2.5 ML)
     Route: 065
     Dates: start: 20150331
  29. XALACOM [Suspect]
     Active Substance: LATANOPROST\TIMOLOL MALEATE
     Dosage: TO RIGHT EYE AT NIGHT (2.5 ML)
     Route: 065
     Dates: start: 20150501
  30. XALACOM [Suspect]
     Active Substance: LATANOPROST\TIMOLOL MALEATE
     Dosage: TO RIGHT EYE AT NIGHT (2.5 ML)
     Route: 065
     Dates: start: 20140714
  31. LATANOPROST. [Suspect]
     Active Substance: LATANOPROST
     Dosage: 01 DROP AT NIGHT IN BOTH EYES
     Route: 065
     Dates: start: 20061103, end: 20080108
  32. LATANOPROST. [Suspect]
     Active Substance: LATANOPROST
     Dosage: 01 DROP AT NIGHT IN BOTH EYES
     Route: 065
     Dates: start: 20060120, end: 20080108
  33. LATANOPROST. [Suspect]
     Active Substance: LATANOPROST
     Dosage: 01 DROP AT NIGHT IN BOTH EYES
     Route: 065
     Dates: start: 20050929, end: 20080108
  34. LATANOPROST. [Suspect]
     Active Substance: LATANOPROST
     Dosage: 01 DROP AT NIGHT IN BOTH EYES
     Route: 065
     Dates: start: 20071001, end: 20080108
  35. LATANOPROST. [Suspect]
     Active Substance: LATANOPROST
     Dosage: 01 DROP AT NIGHT IN BOTH EYES
     Route: 065
     Dates: start: 20070110, end: 20080108
  36. CLIMESSE [Suspect]
     Active Substance: ESTRADIOL VALERATE\NORETHINDRONE
     Dosage: UNK
     Route: 048
     Dates: start: 20121210
  37. CLIMESSE [Suspect]
     Active Substance: ESTRADIOL VALERATE\NORETHINDRONE
     Dosage: UNK
     Route: 048
     Dates: start: 20110707
  38. CLIMESSE [Suspect]
     Active Substance: ESTRADIOL VALERATE\NORETHINDRONE
     Dosage: UNK
     Route: 048
     Dates: start: 20060620
  39. CLIMESSE [Suspect]
     Active Substance: ESTRADIOL VALERATE\NORETHINDRONE
     Dosage: UNK UNK, QD
     Route: 048
     Dates: start: 20010319
  40. KLIOFEM [Suspect]
     Active Substance: ESTRADIOL\NORETHINDRONE ACETATE
     Indication: PRODUCT USED FOR UNKNOWN INDICATION
     Dosage: UNK, QD
     Route: 065
     Dates: start: 20010207
  41. XALACOM [Suspect]
     Active Substance: LATANOPROST\TIMOLOL MALEATE
     Dosage: TO RIGHT EYE AT NIGHT (2.5 ML)
     Route: 065
     Dates: start: 20050607
  42. XALACOM [Suspect]
     Active Substance: LATANOPROST\TIMOLOL MALEATE
     Dosage: TO RIGHT EYE AT NIGHT (2.5 ML)
     Route: 065
     Dates: start: 20140617
  43. XALACOM [Suspect]
     Active Substance: LATANOPROST\TIMOLOL MALEATE
     Dosage: TO RIGHT EYE AT NIGHT (2.5 ML)
     Route: 065
     Dates: start: 20151230
  44. XALACOM [Suspect]
     Active Substance: LATANOPROST\TIMOLOL MALEATE
     Dosage: TO RIGHT EYE AT NIGHT (2.5 ML)
     Route: 065
     Dates: start: 20110512
  45. XALACOM [Suspect]
     Active Substance: LATANOPROST\TIMOLOL MALEATE
     Dosage: TO RIGHT EYE AT NIGHT (2.5 ML)
     Route: 065
     Dates: start: 20150305
  46. XALACOM [Suspect]
     Active Substance: LATANOPROST\TIMOLOL MALEATE
     Dosage: TO RIGHT EYE AT NIGHT (2.5 ML)
     Route: 065
     Dates: start: 20120525
  47. XALACOM [Suspect]
     Active Substance: LATANOPROST\TIMOLOL MALEATE
     Dosage: TO RIGHT EYE AT NIGHT (2.5 ML)
     Route: 065
     Dates: start: 20110228
  48. XALACOM [Suspect]
     Active Substance: LATANOPROST\TIMOLOL MALEATE
     Dosage: TO RIGHT EYE AT NIGHT (2.5 ML)
     Route: 065
     Dates: start: 20141111, end: 20151116
  49. XALACOM [Suspect]
     Active Substance: LATANOPROST\TIMOLOL MALEATE
     Dosage: TO RIGHT EYE AT NIGHT (2.5 ML)
     Route: 065
     Dates: start: 20120917
  50. XALACOM [Suspect]
     Active Substance: LATANOPROST\TIMOLOL MALEATE
     Dosage: TO RIGHT EYE AT NIGHT (2.5 ML)
     Route: 065
     Dates: start: 20110715
  51. XALACOM [Suspect]
     Active Substance: LATANOPROST\TIMOLOL MALEATE
     Dosage: TO RIGHT EYE AT NIGHT (2.5 ML)
     Route: 065
     Dates: start: 20150819
  52. LATANOPROST. [Suspect]
     Active Substance: LATANOPROST
     Dosage: 01 DROP AT NIGHT IN BOTH EYES
     Route: 065
     Dates: start: 20051206, end: 20080108
  53. CLIMESSE [Suspect]
     Active Substance: ESTRADIOL VALERATE\NORETHINDRONE
     Dosage: UNK
     Route: 048
     Dates: start: 20060105
  54. XALACOM [Suspect]
     Active Substance: LATANOPROST\TIMOLOL MALEATE
     Dosage: TO RIGHT EYE AT NIGHT (2.5 ML)
     Route: 065
     Dates: start: 20150714
  55. XALACOM [Suspect]
     Active Substance: LATANOPROST\TIMOLOL MALEATE
     Dosage: TO RIGHT EYE AT NIGHT (2.5 ML)
     Route: 065
     Dates: start: 20150603
  56. XALACOM [Suspect]
     Active Substance: LATANOPROST\TIMOLOL MALEATE
     Dosage: TO RIGHT EYE AT NIGHT (2.5 ML)
     Route: 065
     Dates: start: 20050412, end: 20050607
  57. XALACOM [Suspect]
     Active Substance: LATANOPROST\TIMOLOL MALEATE
     Dosage: TO RIGHT EYE AT NIGHT (2.5 ML)
     Route: 065
     Dates: start: 20120823
  58. XALACOM [Suspect]
     Active Substance: LATANOPROST\TIMOLOL MALEATE
     Dosage: TO RIGHT EYE AT NIGHT (2.5 ML)
     Route: 065
     Dates: start: 20101224, end: 20141020
  59. XALACOM [Suspect]
     Active Substance: LATANOPROST\TIMOLOL MALEATE
     Dosage: TO RIGHT EYE AT NIGHT (2.5 ML)
     Route: 065
     Dates: start: 20150114
  60. XALACOM [Suspect]
     Active Substance: LATANOPROST\TIMOLOL MALEATE
     Dosage: TO RIGHT EYE AT NIGHT (2.5 ML)
     Route: 065
     Dates: start: 20140812
  61. HYDROCORTISONE. [Suspect]
     Active Substance: HYDROCORTISONE
     Dosage: UNK
     Route: 065
     Dates: start: 20110107
  62. LATANOPROST. [Suspect]
     Active Substance: LATANOPROST
     Dosage: 01 DROP AT NIGHT IN BOTH EYES
     Route: 065
     Dates: start: 20060515, end: 20080108
  63. CLIMESSE [Suspect]
     Active Substance: ESTRADIOL VALERATE\NORETHINDRONE
     Indication: HORMONE REPLACEMENT THERAPY
     Dosage: UNK, QD
     Route: 048
     Dates: start: 20010829
  64. CLIMESSE [Suspect]
     Active Substance: ESTRADIOL VALERATE\NORETHINDRONE
     Dosage: UNK
     Route: 048
     Dates: start: 20110119
  65. CLIMESSE [Suspect]
     Active Substance: ESTRADIOL VALERATE\NORETHINDRONE
     Dosage: UNK
     Route: 048
     Dates: start: 20130509
  66. CLIMESSE [Suspect]
     Active Substance: ESTRADIOL VALERATE\NORETHINDRONE
     Dosage: UNK
     Route: 048
     Dates: start: 20071018
  67. CLIMESSE [Suspect]
     Active Substance: ESTRADIOL VALERATE\NORETHINDRONE
     Dosage: UNK
     Route: 048
     Dates: start: 20100811
  68. XALACOM [Suspect]
     Active Substance: LATANOPROST\TIMOLOL MALEATE
     Dosage: TO RIGHT EYE AT NIGHT (2.5 ML)
     Route: 065
     Dates: start: 20151116
  69. XALACOM [Suspect]
     Active Substance: LATANOPROST\TIMOLOL MALEATE
     Dosage: TO RIGHT EYE AT NIGHT (2.5 ML)
     Route: 065
     Dates: start: 20110426
  70. XALACOM [Suspect]
     Active Substance: LATANOPROST\TIMOLOL MALEATE
     Dosage: TO RIGHT EYE AT NIGHT (2.5 ML)
     Route: 065
     Dates: start: 20120423
  71. XALACOM [Suspect]
     Active Substance: LATANOPROST\TIMOLOL MALEATE
     Dosage: TO RIGHT EYE AT NIGHT (2.5 ML)
     Route: 065
     Dates: start: 20121112
  72. XALACOM [Suspect]
     Active Substance: LATANOPROST\TIMOLOL MALEATE
     Dosage: TO RIGHT EYE AT NIGHT (2.5 ML)
     Route: 065
     Dates: start: 20120716
  73. XALACOM [Suspect]
     Active Substance: LATANOPROST\TIMOLOL MALEATE
     Dosage: TO RIGHT EYE AT NIGHT (2.5 ML)
     Route: 065
     Dates: start: 20110321
  74. XALACOM [Suspect]
     Active Substance: LATANOPROST\TIMOLOL MALEATE
     Dosage: TO RIGHT EYE AT NIGHT (2.5 ML)
     Route: 065
     Dates: start: 20151230
  75. AMOXYCILLIN [Concomitant]
     Active Substance: AMOXICILLIN
     Dosage: TID (21 CAPSULES)
     Route: 065
     Dates: start: 20050107
  76. LATANOPROST. [Suspect]
     Active Substance: LATANOPROST
     Dosage: 01 DROP AT NIGHT IN BOTH EYES
     Route: 065
     Dates: start: 20060306, end: 20080108
  77. LATANOPROST. [Suspect]
     Active Substance: LATANOPROST
     Dosage: 01 DROP AT NIGHT IN BOTH EYES
     Route: 065
     Dates: start: 20070220, end: 20080108
  78. CLIMESSE [Suspect]
     Active Substance: ESTRADIOL VALERATE\NORETHINDRONE
     Dosage: UNK
     Route: 048
     Dates: start: 20120612
  79. CLIMESSE [Suspect]
     Active Substance: ESTRADIOL VALERATE\NORETHINDRONE
     Dosage: UNK, QD
     Route: 048
     Dates: start: 20020902
  80. CLIMESSE [Suspect]
     Active Substance: ESTRADIOL VALERATE\NORETHINDRONE
     Dosage: UNK
     Route: 048
     Dates: start: 20120105
  81. XALACOM [Suspect]
     Active Substance: LATANOPROST\TIMOLOL MALEATE
     Dosage: TO RIGHT EYE AT NIGHT (2.5 ML)
     Route: 065
     Dates: start: 20140425
  82. XALACOM [Suspect]
     Active Substance: LATANOPROST\TIMOLOL MALEATE
     Dosage: TO RIGHT EYE AT NIGHT (2.5 ML)
     Route: 065
     Dates: start: 20140522
  83. XALACOM [Suspect]
     Active Substance: LATANOPROST\TIMOLOL MALEATE
     Dosage: TO RIGHT EYE AT NIGHT (2.5 ML)
     Route: 065
     Dates: start: 20150305
  84. XALACOM [Suspect]
     Active Substance: LATANOPROST\TIMOLOL MALEATE
     Dosage: TO RIGHT EYE AT NIGHT (2.5 ML)
     Route: 065
     Dates: start: 20141020
  85. XALACOM [Suspect]
     Active Substance: LATANOPROST\TIMOLOL MALEATE
     Dosage: TO RIGHT EYE AT NIGHT (2.5 ML)
     Route: 065
     Dates: start: 20110120
  86. XALACOM [Suspect]
     Active Substance: LATANOPROST\TIMOLOL MALEATE
     Dosage: TO RIGHT EYE AT NIGHT (2.5 ML)
     Route: 065
     Dates: start: 20150114
  87. LATANOPROST. [Suspect]
     Active Substance: LATANOPROST
     Indication: PRODUCT USED FOR UNKNOWN INDICATION
     Dosage: 01 DROP AT NIGHT IN BOTH EYES
     Route: 065
     Dates: start: 20070418, end: 20080108
  88. LATANOPROST. [Suspect]
     Active Substance: LATANOPROST
     Dosage: 01 DROP AT NIGHT IN BOTH EYES
     Route: 065
     Dates: start: 20060901, end: 20080108
  89. LATANOPROST. [Suspect]
     Active Substance: LATANOPROST
     Dosage: 01 DROP AT NIGHT IN BOTH EYES
     Route: 065
     Dates: start: 20050623, end: 20080108
  90. CLIMESSE [Suspect]
     Active Substance: ESTRADIOL VALERATE\NORETHINDRONE
     Dosage: UNK
     Route: 048
     Dates: start: 20040210
  91. CLIMESSE [Suspect]
     Active Substance: ESTRADIOL VALERATE\NORETHINDRONE
     Dosage: UNK
     Route: 048
     Dates: start: 20100218
  92. TRAVATAN [Suspect]
     Active Substance: TRAVOPROST
     Indication: PRODUCT USED FOR UNKNOWN INDICATION
     Dosage: 1 DOSAGE FORMS DAILY; 1 DF, QHS, AT NIGHT IN BOTH EYES?
     Route: 065
     Dates: start: 20100802, end: 20101119
  93. XALACOM [Suspect]
     Active Substance: LATANOPROST\TIMOLOL MALEATE
     Dosage: TO RIGHT EYE AT NIGHT (2.5 ML)
     Route: 065
     Dates: start: 20120131
  94. XALACOM [Suspect]
     Active Substance: LATANOPROST\TIMOLOL MALEATE
     Dosage: TO RIGHT EYE AT NIGHT (2.5 ML)
     Route: 065
     Dates: start: 20141111
  95. XALACOM [Suspect]
     Active Substance: LATANOPROST\TIMOLOL MALEATE
     Dosage: TO RIGHT EYE AT NIGHT (2.5 ML)
     Route: 065
     Dates: start: 20121210
  96. XALACOM [Suspect]
     Active Substance: LATANOPROST\TIMOLOL MALEATE
     Dosage: TO RIGHT EYE AT NIGHT (2.5 ML)
     Route: 065
     Dates: start: 20130206
  97. XALACOM [Suspect]
     Active Substance: LATANOPROST\TIMOLOL MALEATE
     Dosage: TO RIGHT EYE AT NIGHT (2.5 ML)
     Route: 065
     Dates: start: 20120612
  98. XALACOM [Suspect]
     Active Substance: LATANOPROST\TIMOLOL MALEATE
     Dosage: TO RIGHT EYE AT NIGHT (2.5 ML)
     Route: 065
     Dates: start: 20110616
  99. LATANOPROST. [Suspect]
     Active Substance: LATANOPROST
     Dosage: 01 DROP AT NIGHT IN BOTH EYES
     Route: 065
     Dates: start: 20070813, end: 20080108
  100. LATANOPROST. [Suspect]
     Active Substance: LATANOPROST
     Dosage: 01 DROP AT NIGHT IN BOTH EYES
     Route: 065
     Dates: start: 20060725, end: 20080108
  101. LATANOPROST. [Suspect]
     Active Substance: LATANOPROST
     Dosage: 01 DROP AT NIGHT IN BOTH EYES
     Route: 065
     Dates: start: 20050414, end: 20080108
  102. CLIMESSE [Suspect]
     Active Substance: ESTRADIOL VALERATE\NORETHINDRONE
     Dosage: UNK
     Route: 048
     Dates: start: 20140210
  103. CLIMESSE [Suspect]
     Active Substance: ESTRADIOL VALERATE\NORETHINDRONE
     Dosage: UNK
     Route: 048
     Dates: start: 20030210
  104. XALACOM [Suspect]
     Active Substance: LATANOPROST\TIMOLOL MALEATE
     Dosage: TO RIGHT EYE AT NIGHT (2.5 ML)
     Route: 065
     Dates: start: 20120327
  105. XALACOM [Suspect]
     Active Substance: LATANOPROST\TIMOLOL MALEATE
     Dosage: TO RIGHT EYE AT NIGHT (2.5 ML)
     Route: 065
     Dates: start: 20141230
  106. XALACOM [Suspect]
     Active Substance: LATANOPROST\TIMOLOL MALEATE
     Dosage: TO RIGHT EYE AT NIGHT (2.5 ML)
     Route: 065
     Dates: start: 20121015
  107. AMOXYCILLIN [Concomitant]
     Active Substance: AMOXICILLIN
     Indication: PRODUCT USED FOR UNKNOWN INDICATION
     Dosage: TID (15 CAPSULES)
     Route: 065
     Dates: start: 19900305

REACTIONS (7)
  - Facial paralysis [Recovered/Resolved]
  - Haemorrhoids [Not Recovered/Not Resolved]
  - Normal tension glaucoma [Not Recovered/Not Resolved]
  - Seborrhoeic keratosis [Not Recovered/Not Resolved]
  - Multiple sclerosis [Not Recovered/Not Resolved]
  - Glaucoma [Not Recovered/Not Resolved]
  - Finger deformity [Unknown]

NARRATIVE: CASE EVENT DATE: 20021101
